FAERS Safety Report 25292620 (Version 1)
Quarter: 2025Q2

REPORT INFORMATION
  Report Type: Spontaneous
  Country: US (occurrence: US)
  Receive Date: 20250510
  Receipt Date: 20250510
  Transmission Date: 20250716
  Serious: No
  Sender: SANOFI AVENTIS
  Company Number: US-SA-2025SA124250

PATIENT
  Age: 60 Year
  Sex: Female

DRUGS (27)
  1. DUPIXENT [Suspect]
     Active Substance: DUPILUMAB
     Indication: Asthma
     Route: 058
     Dates: end: 20250425
  2. NUCALA [Concomitant]
     Active Substance: MEPOLIZUMAB
  3. LEVOCETIRIZINE [Concomitant]
     Active Substance: LEVOCETIRIZINE
  4. DIAZEPAM [Concomitant]
     Active Substance: DIAZEPAM
  5. PREDNISONE [Concomitant]
     Active Substance: PREDNISONE
  6. LEVOTHYROXINE [Concomitant]
     Active Substance: LEVOTHYROXINE
  7. ALBUTEROL [Concomitant]
     Active Substance: ALBUTEROL
  8. PEPCID [Concomitant]
     Active Substance: FAMOTIDINE
  9. LIPITOR [Concomitant]
     Active Substance: ATORVASTATIN CALCIUM
  10. GABAPENTIN [Concomitant]
     Active Substance: GABAPENTIN
  11. MEDROXYPROGESTERONE [Concomitant]
     Active Substance: MEDROXYPROGESTERONE
  12. ATROVENT [Concomitant]
     Active Substance: IPRATROPIUM BROMIDE
  13. TYLENOL [Concomitant]
     Active Substance: ACETAMINOPHEN
  14. TRELEGY ELLIPTA [Concomitant]
     Active Substance: FLUTICASONE FUROATE\UMECLIDINIUM BROMIDE\VILANTEROL TRIFENATATE
  15. TOPAMAX [Concomitant]
     Active Substance: TOPIRAMATE
  16. ZEPBOUND [Concomitant]
     Active Substance: TIRZEPATIDE
  17. ZOFRAN [Concomitant]
     Active Substance: ONDANSETRON HYDROCHLORIDE
  18. HYDROCORTISONE [Concomitant]
     Active Substance: HYDROCORTISONE
  19. FASENRA [Concomitant]
     Active Substance: BENRALIZUMAB
  20. IMITREX [Concomitant]
     Active Substance: SUMATRIPTAN SUCCINATE
  21. PRILOSEC [Concomitant]
     Active Substance: OMEPRAZOLE MAGNESIUM
  22. CYMBALTA [Concomitant]
     Active Substance: DULOXETINE HYDROCHLORIDE
  23. ZAFIRLUKAST [Concomitant]
     Active Substance: ZAFIRLUKAST
  24. CYCLOBENZAPRINE [Concomitant]
     Active Substance: CYCLOBENZAPRINE
  25. CLINDAMYCIN [Concomitant]
     Active Substance: CLINDAMYCIN
  26. MYRBETRIQ [Concomitant]
     Active Substance: MIRABEGRON
  27. PLAQUENIL [Concomitant]
     Active Substance: HYDROXYCHLOROQUINE SULFATE

REACTIONS (2)
  - Urticaria [Unknown]
  - Injection site bruising [Unknown]

NARRATIVE: CASE EVENT DATE: 20250415
